FAERS Safety Report 5086411-2 (Version None)
Quarter: 2006Q3

REPORT INFORMATION
  Report Type: 
  Country: None (occurrence: None)
  Receive Date: 20060823
  Receipt Date: 20060725
  Transmission Date: 20061208
  Serious: Yes (Other)
  Sender: FDA-Public Use
  Company Number: PHEH2006US09561

PATIENT
  Age: 70 Year
  Sex: Male

DRUGS (7)
  1. ZOMETA [Suspect]
     Indication: METASTASES TO BONE
     Dosage: 4 MG, QMO
     Dates: start: 20040913, end: 20051103
  2. CASODEX [Concomitant]
     Indication: PROSTATE CANCER
     Dosage: 50 MG, QD
     Dates: start: 20040901
  3. AVODART [Concomitant]
     Indication: PROSTATE EXAMINATION ABNORMAL
     Dosage: 0.5 MG, UNK
     Dates: start: 20040901
  4. LUPRON [Concomitant]
     Indication: PROSTATE CANCER
     Dosage: 22.5 MG, Q3MO
     Dates: start: 20040901
  5. PAXIL [Concomitant]
     Indication: DEPRESSION
     Dosage: 25 MG, QD
     Dates: start: 20040827
  6. UROXATRAL [Concomitant]
     Indication: PROSTATE EXAMINATION ABNORMAL
     Dosage: 10 MG, QD
     Dates: start: 20050324
  7. ANTIBIOTICS [Concomitant]

REACTIONS (3)
  - ORAL SOFT TISSUE DISORDER [None]
  - OSTEOMYELITIS [None]
  - OSTEONECROSIS [None]
